FAERS Safety Report 16795010 (Version 1)
Quarter: 2019Q3

REPORT INFORMATION
  Report Type: Spontaneous
  Country: US (occurrence: US)
  Receive Date: 20190911
  Receipt Date: 20190911
  Transmission Date: 20191005
  Serious: No
  Sender: FDA-Public Use
  Company Number: US-PFIZER INC-2019391595

PATIENT
  Age: 34 Year
  Sex: Male

DRUGS (1)
  1. EUCRISA [Suspect]
     Active Substance: CRISABOROLE
     Indication: DERMATITIS
     Dosage: APPLY TO AFFECTED AREA ON EYELIDS 2-3 TIMES DAILY, DAILY
     Route: 061

REACTIONS (2)
  - Drug ineffective [Unknown]
  - Pain [Unknown]
